FAERS Safety Report 9436519 (Version 1)
Quarter: 2013Q3

REPORT INFORMATION
  Report Type: Report from Study
  Country: FR (occurrence: FR)
  Receive Date: 20130802
  Receipt Date: 20130802
  Transmission Date: 20140515
  Serious: Yes (Hospitalization, Other)
  Sender: FDA-Public Use
  Company Number: FR-OPTIMER-20130042

PATIENT
  Age: 67 Year
  Sex: Female
  Weight: 63 kg

DRUGS (2)
  1. FIDAXOMICIN [Suspect]
     Indication: CLOSTRIDIAL INFECTION
     Dosage: 1 DF, QID
     Route: 048
     Dates: start: 20130115, end: 20130125
  2. MYCOPHENOLATE MOFETIL [Suspect]
     Indication: PROPHYLAXIS AGAINST TRANSPLANT REJECTION
     Dosage: 180 MG, BID
     Route: 048
     Dates: start: 20120912

REACTIONS (1)
  - Neutropenia [Recovered/Resolved]
